FAERS Safety Report 4565132-6 (Version None)
Quarter: 2005Q1

REPORT INFORMATION
  Report Type: 
  Country: None (occurrence: None)
  Receive Date: 20050131
  Receipt Date: 20050124
  Transmission Date: 20050727
  Serious: Yes (Hospitalization)
  Sender: FDA-Public Use
  Company Number: PHBS2005ES01319

PATIENT
  Age: 74 Year
  Sex: Male

DRUGS (4)
  1. ADIRO [Suspect]
     Indication: OSTEOARTHRITIS
     Dates: start: 19990101
  2. ACETENSIL [Suspect]
     Indication: ESSENTIAL HYPERTENSION
     Dates: start: 19940101
  3. ALLOPURINOL [Suspect]
     Indication: GOUT
     Dates: start: 19890101
  4. VOLTAREN [Suspect]
     Route: 048
     Dates: start: 20041017

REACTIONS (2)
  - DRUG INTERACTION [None]
  - GASTROINTESTINAL HAEMORRHAGE [None]
